FAERS Safety Report 6272089-9 (Version None)
Quarter: 2009Q3

REPORT INFORMATION
  Report Type: 
  Country: None (occurrence: None)
  Receive Date: 20090717
  Receipt Date: 20090707
  Transmission Date: 20100115
  Serious: Yes (Hospitalization)
  Sender: FDA-Public Use
  Company Number: B0576614A

PATIENT
  Age: 77 Year
  Sex: Female
  Weight: 42 kg

DRUGS (2)
  1. VALTREX [Suspect]
     Indication: PHARYNGITIS
     Dosage: 500MG TWICE PER DAY
     Route: 048
     Dates: start: 20090513, end: 20090514
  2. CALBLOCK [Concomitant]
     Indication: HYPERTENSION
     Dosage: 16MG PER DAY
     Route: 048

REACTIONS (2)
  - PYREXIA [None]
  - RASH [None]
